FAERS Safety Report 8737380 (Version 5)
Quarter: 2013Q4

REPORT INFORMATION
  Report Type: Report from Study
  Country: JP (occurrence: JP)
  Receive Date: 20120822
  Receipt Date: 20131230
  Transmission Date: 20140711
  Serious: Yes (Hospitalization, Other)
  Sender: FDA-Public Use
  Company Number: JP-VERTEX PHARMACEUTICAL INC.-2012-019677

PATIENT
  Age: 66 Year
  Sex: Male

DRUGS (9)
  1. VX-950 (TELAPREVIR) [Suspect]
     Indication: CHRONIC HEPATITIS C
     Dosage: 2250 MG, QD
     Route: 048
     Dates: start: 20120614
  2. RIBAVIRIN [Suspect]
     Indication: CHRONIC HEPATITIS C
     Dosage: 800 MG, QD
     Route: 048
     Dates: start: 20120614, end: 20120704
  3. RIBAVIRIN [Suspect]
     Dosage: 600 MG, QD
     Route: 048
     Dates: start: 20120705, end: 20120711
  4. RIBAVIRIN [Suspect]
     Dosage: 400 MG, QD
     Route: 048
     Dates: start: 20120712, end: 20120829
  5. RIBAVIRIN [Suspect]
     Dosage: 200 MG, QD
     Route: 048
     Dates: start: 20120830, end: 20121128
  6. PEGINTERFERON ALFA-2B [Suspect]
     Indication: CHRONIC HEPATITIS C
     Dosage: 100 ?G/BODY, QW
     Route: 058
     Dates: start: 20120614, end: 20120620
  7. PEGINTERFERON ALFA-2B [Suspect]
     Dosage: 50 ?G/BODY, QW
     Route: 058
     Dates: start: 20120621, end: 20121011
  8. PEGINTERFERON ALFA-2B [Suspect]
     Dosage: 50 ?G/BODY, QW
     Route: 058
     Dates: start: 20121025, end: 20121128
  9. ZYLORIC [Suspect]
     Dosage: 100 MG, QD
     Route: 048
     Dates: start: 20120726, end: 20120809

REACTIONS (2)
  - Neutrophil count decreased [Recovered/Resolved]
  - Cellulitis [Recovered/Resolved]
